FAERS Safety Report 25864376 (Version 1)
Quarter: 2025Q3

REPORT INFORMATION
  Report Type: Spontaneous
  Country: CN (occurrence: CN)
  Receive Date: 20250930
  Receipt Date: 20250930
  Transmission Date: 20251021
  Serious: Yes (Other)
  Sender: BAYER HEALTHCARE PHARMACEUTICALS INC.
  Company Number: CN-BAYER-2025A129292

PATIENT
  Age: 71 Year
  Sex: Female
  Weight: 60 kg

DRUGS (1)
  1. ULTRAVIST [Suspect]
     Active Substance: IOPROMIDE
     Indication: Percutaneous coronary intervention
     Route: 037
     Dates: start: 20250922, end: 20250922

REACTIONS (8)
  - Tachycardia [Recovered/Resolved]
  - Body temperature increased [Recovered/Resolved]
  - Aphasia [Recovering/Resolving]
  - Blood pressure increased [None]
  - Posture abnormal [Recovering/Resolving]
  - Patient uncooperative [Recovering/Resolving]
  - Contraindicated product prescribed [None]
  - Incorrect route of product administration [None]

NARRATIVE: CASE EVENT DATE: 20250922
